FAERS Safety Report 4475444-2 (Version None)
Quarter: 2004Q4

REPORT INFORMATION
  Report Type: 
  Country: None (occurrence: None)
  Receive Date: 20041015
  Receipt Date: 20041007
  Transmission Date: 20050328
  Serious: Yes (Other)
  Sender: FDA-Public Use
  Company Number: JP-ROCHE-382609

PATIENT
  Sex: Female

DRUGS (3)
  1. PEGASYS [Suspect]
     Route: 058
     Dates: start: 20040815
  2. PEGASYS [Suspect]
     Route: 058
     Dates: end: 20040920
  3. MEVALOTIN [Concomitant]

REACTIONS (1)
  - ERYTHEMA MULTIFORME [None]
